FAERS Safety Report 5472397-5 (Version None)
Quarter: 2007Q3

REPORT INFORMATION
  Report Type: 
  Country: None (occurrence: None)
  Receive Date: 20070927
  Receipt Date: 20070912
  Transmission Date: 20080115
  Serious: Yes (Life-Threatening, Hospitalization, Other)
  Sender: FDA-Public Use
  Company Number: PAR_01735_2007

PATIENT
  Sex: Male

DRUGS (1)
  1. MEGACE ES [Suspect]
     Indication: DRUG USE FOR UNKNOWN INDICATION
     Dosage: (625 MG/5 ML ORAL)
     Route: 048

REACTIONS (2)
  - PULMONARY FIBROSIS [None]
  - RESPIRATORY DISTRESS [None]
